FAERS Safety Report 9780043 (Version 3)
Quarter: 2014Q1

REPORT INFORMATION
  Report Type: Spontaneous
  Country: DE (occurrence: DE)
  Receive Date: 20131223
  Receipt Date: 20140213
  Transmission Date: 20141002
  Serious: Yes (Death)
  Sender: FDA-Public Use
  Company Number: DE-BAXTER-2013BAX049346

PATIENT
  Age: 79 Year
  Sex: Male
  Weight: 75 kg

DRUGS (1)
  1. ADVATE 3000 I.E. [Suspect]
     Indication: PROPHYLAXIS
     Route: 042

REACTIONS (2)
  - Mouth haemorrhage [Recovered/Resolved]
  - Death [Fatal]
